FAERS Safety Report 8430048-1 (Version None)
Quarter: 2012Q2

REPORT INFORMATION
  Report Type: 
  Country: None (occurrence: None)
  Receive Date: 20120612
  Receipt Date: 20120604
  Transmission Date: 20120825
  Serious: Yes (Hospitalization)
  Sender: FDA-Public Use
  Company Number: DE-ROCHE-1074689

PATIENT
  Sex: Female
  Weight: 57 kg

DRUGS (6)
  1. AMITRIPTYLINE HCL [Concomitant]
  2. DIPYRONE TAB [Concomitant]
     Dosage: 3X30 TSOPF
  3. FUROSEMIDE [Concomitant]
     Dosage: 1-0-0
  4. XELODA [Suspect]
     Indication: BREAST CANCER
     Dosage: LAST DOSE PRIOR TO SAE 3 JUN 2012,
     Route: 048
     Dates: start: 20120430
  5. VINORELBINE TARTRATE [Suspect]
     Indication: BREAST CANCER
     Dosage: LAST DOSE PRIOR TO SAE  21 MAY 2012
     Route: 042
     Dates: start: 20120430
  6. AMLODIPINE [Concomitant]
     Dosage: 0-0-1/2

REACTIONS (3)
  - GENERAL PHYSICAL HEALTH DETERIORATION [None]
  - ASTHENIA [None]
  - DYSPNOEA [None]
